FAERS Safety Report 8798191 (Version 1)
Quarter: 2012Q4

REPORT INFORMATION
  Report Type: 
  Country: US (occurrence: US)
  Receive Date: 20120920
  Receipt Date: 20120920
  Transmission Date: 20130627
  Serious: No
  Sender: FDA-Public Use
  Company Number: US-BAUSCH-2012BL001912

PATIENT
  Age: 82 Year
  Sex: Female

DRUGS (3)
  1. ERYTHROMYCIN [Suspect]
     Indication: PRODUCT USED FOR UNKNOWN INDICATION
     Dosage: daily dose: 1 RIBBON
     Route: 047
     Dates: start: 20120309, end: 20120312
  2. TOBRAMYCIN OPHTHALMIC SOLUTION USP 0.3% [Suspect]
     Indication: PRODUCT USED FOR UNKNOWN INDICATION
     Route: 047
     Dates: start: 20120309, end: 20120312
  3. VICODIN [Concomitant]
     Indication: PAIN

REACTIONS (2)
  - Urticaria [Recovering/Resolving]
  - Blood pressure increased [Recovering/Resolving]
